FAERS Safety Report 8317412-6 (Version None)
Quarter: 2012Q2

REPORT INFORMATION
  Report Type: 
  Country: None (occurrence: None)
  Receive Date: 20120427
  Receipt Date: 20120419
  Transmission Date: 20120825
  Serious: Yes (Other)
  Sender: FDA-Public Use
  Company Number: US-UCBSA-054595

PATIENT
  Sex: Female
  Weight: 57.15 kg

DRUGS (2)
  1. METHOTREXATE [Concomitant]
     Route: 030
     Dates: start: 20110901, end: 20110901
  2. CIMZIA [Suspect]
     Indication: CROHN'S DISEASE
     Dosage: 6 DOSES
     Route: 058
     Dates: start: 20110929, end: 20120101

REACTIONS (1)
  - THYROID CANCER [None]
